FAERS Safety Report 23641193 (Version 1)
Quarter: 2024Q1

REPORT INFORMATION
  Report Type: Spontaneous
  Country: CN (occurrence: CN)
  Receive Date: 20240318
  Receipt Date: 20240318
  Transmission Date: 20240409
  Serious: Yes (Other)
  Sender: FDA-Public Use
  Company Number: None

PATIENT
  Age: 83 Year
  Sex: Female
  Weight: 55 kg

DRUGS (3)
  1. MANNITOL [Suspect]
     Active Substance: MANNITOL
     Indication: Subarachnoid haemorrhage
     Dosage: 100 ML(MILLILITRE) AT EVERY EIGHT HOUR (THREE TIMES A DAY), DOSAGE FORM: INJECTION
     Route: 041
     Dates: start: 20240223, end: 20240224
  2. MANNITOL [Suspect]
     Active Substance: MANNITOL
     Indication: Reduction of increased intracranial pressure
     Dosage: 125 ML(MILLILITRE) EVERY 8 HOUR (THREE TIMES A DAY), DOSAGE FORM: INJECTION
     Route: 041
     Dates: start: 20240224, end: 20240227
  3. MANNITOL [Suspect]
     Active Substance: MANNITOL
     Indication: Dehydration
     Dosage: 100 ML(MILLILITRE) AT EVERY EIGHT HOUR (THRE TIMES A DAY), DOSAGE FORM: INJECTION
     Route: 041
     Dates: start: 20240228, end: 20240303

REACTIONS (3)
  - Renal impairment [Recovering/Resolving]
  - Blood creatinine abnormal [Recovering/Resolving]
  - Blood urea abnormal [Recovering/Resolving]

NARRATIVE: CASE EVENT DATE: 20240226
